FAERS Safety Report 8971762 (Version 1)
Quarter: 2012Q4

REPORT INFORMATION
  Report Type: 
  Country: US (occurrence: US)
  Receive Date: 20121217
  Receipt Date: 20121217
  Transmission Date: 20130627
  Serious: Yes (Death)
  Sender: FDA-Public Use
  Company Number: US-ASTELLAS-2012US012064

PATIENT
  Sex: Female

DRUGS (1)
  1. TARCEVA [Suspect]
     Indication: METASTASES TO LYMPH NODES
     Dosage: UNK
     Route: 048

REACTIONS (2)
  - Death [Fatal]
  - Malaise [Unknown]
